FAERS Safety Report 24290836 (Version 2)
Quarter: 2024Q3

REPORT INFORMATION
  Report Type: Spontaneous
  Country: TW (occurrence: TW)
  Receive Date: 20240906
  Receipt Date: 20240912
  Transmission Date: 20241016
  Serious: Yes (Other)
  Sender: MERCK
  Company Number: TW-009507513-2409TWN001615

PATIENT
  Age: 48 Year
  Sex: Male

DRUGS (3)
  1. PEMBROLIZUMAB [Suspect]
     Active Substance: PEMBROLIZUMAB
     Indication: Bladder transitional cell carcinoma metastatic
     Dosage: 200 MILLIGRAM, Q3W
     Dates: start: 202109
  2. ENFORTUMAB VEDOTIN [Suspect]
     Active Substance: ENFORTUMAB VEDOTIN
     Indication: Bladder transitional cell carcinoma metastatic
     Dosage: 1.25 MILLIGRAM/KILOGRAM, ON DAY 1, DAY 8 EVERY 3 WEEKS (Q3W) (CYCLICAL)
     Dates: start: 202109, end: 2021
  3. ENFORTUMAB VEDOTIN [Suspect]
     Active Substance: ENFORTUMAB VEDOTIN
     Dosage: 1 MILLIGRAM/KILOGRAM, ON DAY 1, DAY 8 EVERY 3 WEEKS (Q3W) (CYCLICAL)
     Dates: start: 202112

REACTIONS (6)
  - Chronic inflammatory demyelinating polyradiculoneuropathy [Unknown]
  - Dermatitis bullous [Unknown]
  - Pemphigoid [Unknown]
  - Hypoaesthesia [Unknown]
  - Muscular weakness [Unknown]
  - Product use issue [Unknown]

NARRATIVE: CASE EVENT DATE: 20210901
